FAERS Safety Report 6665806-7 (Version None)
Quarter: 2010Q2

REPORT INFORMATION
  Report Type: 
  Country: None (occurrence: None)
  Receive Date: 20100402
  Receipt Date: 20100323
  Transmission Date: 20101027
  Serious: Yes (Other)
  Sender: FDA-Public Use
  Company Number: US-PFIZER INC-2010037642

PATIENT
  Sex: Male

DRUGS (10)
  1. DILANTIN [Suspect]
     Indication: CONVULSION
     Dosage: 30 MG, UNK
     Dates: start: 20070901
  2. PHENYTOIN SODIUM [Suspect]
     Indication: CONVULSION
     Dosage: UNK
     Dates: start: 20060801
  3. OMEPRAZOLE [Concomitant]
     Dosage: 20 MG, 1X/DAY
     Dates: start: 20100317
  4. PHENOBARBITAL TAB [Concomitant]
     Indication: CONVULSION
     Dosage: 48.6 MG, 1X/DAY
     Dates: start: 20031101
  5. PHENOBARBITAL TAB [Concomitant]
  6. LORAZEPAM [Concomitant]
     Indication: CONVULSION
     Dosage: FREQUENCY: 2X/DAY,
     Dates: start: 20060701
  7. LORAZEPAM [Concomitant]
  8. GABAPENTIN [Concomitant]
     Indication: CONVULSION
     Dosage: FREQUENCY: 4X/DAY,
     Dates: start: 20091201
  9. GABAPENTIN [Concomitant]
  10. MIRALAX [Concomitant]
     Indication: CONSTIPATION
     Dosage: 17 G, 1X/DAY
     Dates: start: 20081101

REACTIONS (3)
  - DRUG LEVEL DECREASED [None]
  - ENTEROSTOMY [None]
  - MEDICATION RESIDUE [None]
